FAERS Safety Report 9066863 (Version 1)
Quarter: 2013Q1

REPORT INFORMATION
  Report Type: Report from Study
  Country: US (occurrence: US)
  Receive Date: 20130131
  Receipt Date: 20130131
  Transmission Date: 20140127
  Serious: No
  Sender: FDA-Public Use
  Company Number: US-ABBOTT-12P-163-1010826-00

PATIENT
  Age: 65 Year
  Sex: Female

DRUGS (14)
  1. HUMIRA [Suspect]
     Indication: PSORIASIS
     Route: 058
     Dates: start: 20121008
  2. WELLBUTRIN [Concomitant]
     Indication: DEPRESSION
     Dosage: 300MG DAILY
  3. LEXAPRO [Concomitant]
     Indication: DEPRESSION
     Dosage: 10MG DAILY
  4. BYSTOLIC [Concomitant]
     Indication: MYOCARDIAL INFARCTION
     Dosage: 10MG DAILY
     Dates: start: 2008
  5. SIMVASTATIN [Concomitant]
     Indication: BLOOD CHOLESTEROL INCREASED
     Dosage: 40MG DAILY
  6. SIMVASTATIN [Concomitant]
     Indication: HYPERTENSION
  7. MULTIVITAMIN [Concomitant]
     Indication: PRODUCT USED FOR UNKNOWN INDICATION
  8. GARLIC [Concomitant]
     Indication: PRODUCT USED FOR UNKNOWN INDICATION
  9. FISH OIL [Concomitant]
     Indication: PRODUCT USED FOR UNKNOWN INDICATION
  10. RED NIACIN [Concomitant]
     Indication: SUPPLEMENTATION THERAPY
  11. OTHER VITAMINS [Concomitant]
     Indication: SUPPLEMENTATION THERAPY
     Dosage: DAILY
  12. BABY ASA [Concomitant]
     Indication: CARDIOVASCULAR EVENT PROPHYLAXIS
     Dosage: 81MG DAILY
  13. SEROQUEL [Concomitant]
     Indication: INSOMNIA
     Dosage: 25MG AT NIGHT
  14. CLARITIN [Concomitant]
     Indication: HYPERSENSITIVITY
     Dosage: DAILY

REACTIONS (2)
  - Psoriasis [Not Recovered/Not Resolved]
  - Pain [Recovered/Resolved]
